FAERS Safety Report 9517041 (Version 1)
Quarter: 2013Q3

REPORT INFORMATION
  Report Type: Spontaneous
  Country: US (occurrence: US)
  Receive Date: 20130911
  Receipt Date: 20130911
  Transmission Date: 20140515
  Serious: No
  Sender: FDA-Public Use
  Company Number: US-PFIZER INC-2013259426

PATIENT
  Sex: Male

DRUGS (2)
  1. XELJANZ [Suspect]
     Dosage: 5 MG, 2X/DAY
  2. XELJANZ [Suspect]
     Dosage: 5 MG, 1X/DAY

REACTIONS (1)
  - Liver function test abnormal [Unknown]
